FAERS Safety Report 8274199-3 (Version None)
Quarter: 2012Q2

REPORT INFORMATION
  Report Type: 
  Country: None (occurrence: None)
  Receive Date: 20120411
  Receipt Date: 20120406
  Transmission Date: 20120825
  Serious: No
  Sender: FDA-Public Use
  Company Number: US-B.I. PHARMACEUTICALS,INC./RIDGEFIELD-2012-BP-06498BP

PATIENT
  Sex: Female

DRUGS (23)
  1. PRADAXA [Suspect]
     Indication: ATRIAL FIBRILLATION
     Dosage: 150 MG
     Route: 048
     Dates: start: 20110801, end: 20120326
  2. LORAZEPAM [Concomitant]
     Indication: BACK PAIN
     Route: 048
     Dates: start: 20080101
  3. POTASSIUM CHLORIDE [Concomitant]
     Indication: SUPPLEMENTATION THERAPY
     Route: 048
     Dates: start: 20070101
  4. PRADAXA [Suspect]
     Dosage: 150 MG
     Route: 048
     Dates: start: 20120331
  5. LEXAPRO [Concomitant]
     Indication: DEPRESSION
     Route: 048
     Dates: start: 20070101
  6. VITAMIN D [Concomitant]
     Indication: SUPPLEMENTATION THERAPY
     Route: 048
     Dates: start: 20110101
  7. LASIX [Concomitant]
     Dosage: 40 MG
     Route: 048
     Dates: start: 20070101
  8. MULTI-VITAMIN [Concomitant]
     Indication: SUPPLEMENTATION THERAPY
     Route: 048
     Dates: start: 20050101
  9. PERCOCET [Concomitant]
     Indication: BACK PAIN
     Route: 048
     Dates: start: 20080101
  10. PRAVASTATIN [Concomitant]
     Indication: BLOOD CHOLESTEROL INCREASED
     Route: 048
     Dates: start: 20110101
  11. ZINC AND VITAMIN D [Concomitant]
     Indication: SUPPLEMENTATION THERAPY
     Route: 048
     Dates: start: 20110101
  12. COREG [Concomitant]
     Indication: CARDIAC DISORDER
     Route: 048
     Dates: start: 20110701
  13. HYDROXYZINE [Concomitant]
     Indication: PRURITUS GENERALISED
     Route: 048
     Dates: start: 20070101
  14. LANOXIN [Concomitant]
     Indication: CARDIAC DISORDER
     Route: 048
     Dates: start: 20110701
  15. NEXIUM [Concomitant]
     Indication: ABDOMINAL DISCOMFORT
     Route: 048
     Dates: start: 20110101
  16. LASIX [Concomitant]
     Indication: CARDIAC FAILURE CONGESTIVE
     Dosage: 80 MG
     Route: 048
     Dates: start: 20070101
  17. LEVOTHYROXINE SODIUM [Concomitant]
     Indication: HYPOTHYROIDISM
     Dosage: 100 MCG
     Route: 048
     Dates: start: 20070101
  18. OXYCODONE HCL [Concomitant]
     Indication: MUSCULOSKELETAL PAIN
     Dosage: 80 MG
     Route: 048
     Dates: start: 20080101
  19. PERCOCET [Concomitant]
     Indication: MUSCULOSKELETAL PAIN
  20. LORAZEPAM [Concomitant]
     Indication: MUSCULOSKELETAL PAIN
  21. OXYCODONE HCL [Concomitant]
  22. VITAMIN B-12 [Concomitant]
     Indication: SUPPLEMENTATION THERAPY
     Route: 048
     Dates: start: 20050101
  23. ASCORBIC ACID [Concomitant]
     Indication: SUPPLEMENTATION THERAPY
     Route: 048
     Dates: start: 20070101

REACTIONS (1)
  - HYPERHIDROSIS [None]
